FAERS Safety Report 19765343 (Version 1)
Quarter: 2021Q3

REPORT INFORMATION
  Report Type: Spontaneous
  Country: US (occurrence: US)
  Receive Date: 20210830
  Receipt Date: 20210830
  Transmission Date: 20211014
  Serious: Yes (Other)
  Sender: FDA-Public Use
  Company Number: US-PFIZER INC-202101058683

PATIENT
  Age: 42 Year
  Sex: Female
  Weight: 81.65 kg

DRUGS (1)
  1. CHANTIX [Suspect]
     Active Substance: VARENICLINE TARTRATE
     Indication: SMOKING CESSATION THERAPY
     Dosage: 0.5 MG (FOR THE FIRST WEEK)

REACTIONS (17)
  - Agitation [Unknown]
  - Gait inability [Not Recovered/Not Resolved]
  - Illness [Unknown]
  - Mood altered [Unknown]
  - Hypoaesthesia [Unknown]
  - Dysstasia [Not Recovered/Not Resolved]
  - Back pain [Unknown]
  - Headache [Unknown]
  - Cerebrovascular accident [Not Recovered/Not Resolved]
  - Crying [Unknown]
  - Depressed mood [Not Recovered/Not Resolved]
  - Peripheral swelling [Unknown]
  - Abortion spontaneous [Unknown]
  - Nausea [Unknown]
  - Nightmare [Unknown]
  - Pain in extremity [Recovered/Resolved]
  - Fall [Not Recovered/Not Resolved]
